FAERS Safety Report 5781317-5 (Version None)
Quarter: 2008Q2

REPORT INFORMATION
  Report Type: 
  Country: None (occurrence: None)
  Receive Date: 20080623
  Receipt Date: 20080521
  Transmission Date: 20081010
  Serious: No
  Sender: FDA-Public Use
  Company Number: US-BAYER-200823950NA

PATIENT
  Age: 23 Year
  Sex: Female
  Weight: 91 kg

DRUGS (1)
  1. YAZ [Suspect]
     Indication: CONTRACEPTION
     Route: 048
     Dates: start: 20080430

REACTIONS (3)
  - BREAST PAIN [None]
  - MOOD SWINGS [None]
  - VAGINAL HAEMORRHAGE [None]
